FAERS Safety Report 20131179 (Version 3)
Quarter: 2021Q4

REPORT INFORMATION
  Report Type: Report from Study
  Country: GB (occurrence: GB)
  Receive Date: 20211130
  Receipt Date: 20211206
  Transmission Date: 20220303
  Serious: Yes (Life-Threatening, Hospitalization)
  Sender: FDA-Public Use
  Company Number: GB-PFIZER INC-202101406255

PATIENT
  Age: 35 Year
  Sex: Female

DRUGS (4)
  1. MYLOTARG [Interacting]
     Active Substance: GEMTUZUMAB OZOGAMICIN
     Indication: Acute myeloid leukaemia
     Dosage: 3 MG/M2
     Route: 042
     Dates: start: 20210930, end: 20210930
  2. CYTARABINE [Interacting]
     Active Substance: CYTARABINE
     Indication: Acute myeloid leukaemia
     Dosage: UNK
     Dates: start: 20210930, end: 20211010
  3. DAUNORUBICIN [Interacting]
     Active Substance: DAUNORUBICIN
     Indication: Acute myeloid leukaemia
     Dosage: UNK
     Dates: start: 20210930, end: 20211004
  4. GUSELKUMAB [Interacting]
     Active Substance: GUSELKUMAB
     Indication: Psoriasis
     Dosage: UNK
     Dates: start: 202108

REACTIONS (3)
  - Drug interaction [Recovered/Resolved]
  - Septic shock [Recovered/Resolved]
  - Infection [Recovered/Resolved with Sequelae]

NARRATIVE: CASE EVENT DATE: 20211018
